FAERS Safety Report 19479773 (Version 1)
Quarter: 2021Q2

REPORT INFORMATION
  Report Type: Spontaneous
  Country: US (occurrence: US)
  Receive Date: 20210630
  Receipt Date: 20210630
  Transmission Date: 20210717
  Serious: Yes (Other)
  Sender: FDA-Public Use
  Company Number: US-GLAXOSMITHKLINE-USCH2021AMR035329

PATIENT
  Age: 82 Year
  Sex: Female
  Weight: 44.9 kg

DRUGS (6)
  1. TYLENOL [Suspect]
     Active Substance: ACETAMINOPHEN
     Indication: BACK PAIN
     Dosage: UNK
  2. METOPROLOL. [Suspect]
     Active Substance: METOPROLOL
     Indication: PRODUCT USED FOR UNKNOWN INDICATION
     Dosage: UNK
  3. ASPIRIN. [Suspect]
     Active Substance: ASPIRIN
     Indication: BACK PAIN
     Dosage: UNK
  4. IBUPROFEN. [Suspect]
     Active Substance: IBUPROFEN
     Indication: BACK PAIN
     Dosage: UNK
  5. TRAMADOL. [Suspect]
     Active Substance: TRAMADOL
     Indication: BACK PAIN
     Dosage: UNK
  6. TORADOL [Suspect]
     Active Substance: KETOROLAC TROMETHAMINE
     Indication: BACK PAIN
     Dosage: UNK

REACTIONS (15)
  - Pulmonary oedema [Unknown]
  - Nausea [Unknown]
  - Belligerence [Unknown]
  - Dysphagia [Unknown]
  - Drug ineffective [Unknown]
  - Dysarthria [Unknown]
  - Decreased appetite [Unknown]
  - Bronchospasm [Unknown]
  - Dyspnoea [Unknown]
  - Dysphonia [Unknown]
  - Malaise [Unknown]
  - Emotional disorder [Unknown]
  - Anuria [Unknown]
  - Blood pressure increased [Unknown]
  - Mood altered [Unknown]
